FAERS Safety Report 22887767 (Version 2)
Quarter: 2024Q2

REPORT INFORMATION
  Report Type: Spontaneous
  Country: CA (occurrence: None)
  Receive Date: 20230831
  Receipt Date: 20240520
  Transmission Date: 20240716
  Serious: Yes (Other)
  Sender: FDA-Public Use
  Company Number: CA-PFIZER INC-202300265906

PATIENT
  Age: 35 Year
  Sex: Female
  Weight: 55.5 kg

DRUGS (16)
  1. METHOTREXATE [Suspect]
     Active Substance: METHOTREXATE
     Indication: Systemic lupus erythematosus
     Dosage: UNKNOWN DOSE AND THERAPY TIMELINE
  2. METHOTREXATE [Suspect]
     Active Substance: METHOTREXATE
  3. AZATHIOPRINE [Suspect]
     Active Substance: AZATHIOPRINE
     Indication: Systemic lupus erythematosus
  4. AZATHIOPRINE [Suspect]
     Active Substance: AZATHIOPRINE
     Dates: start: 2017
  5. AZATHIOPRINE [Suspect]
     Active Substance: AZATHIOPRINE
     Dates: start: 2021
  6. COLCHICINE [Concomitant]
     Active Substance: COLCHICINE
     Dosage: 1 DF, 2 TAB A DAY
     Dates: start: 2023
  7. PLAQUENIL [Concomitant]
     Active Substance: HYDROXYCHLOROQUINE SULFATE
     Dates: start: 202303
  8. PREDNISONE [Concomitant]
     Active Substance: PREDNISONE
     Dates: start: 202404
  9. PREDNISONE [Concomitant]
     Active Substance: PREDNISONE
     Dates: start: 202404
  10. CELLCEPT [Concomitant]
     Active Substance: MYCOPHENOLATE MOFETIL
  11. IMURAN [Concomitant]
     Active Substance: AZATHIOPRINE
  12. IMURAN [Concomitant]
     Active Substance: AZATHIOPRINE
     Dosage: 1 DOSAGE FORM, 125MG A DAY ON MONDAY, WEDNESDAY AND FRIDAY
     Dates: start: 20240125
  13. IMURAN [Concomitant]
     Active Substance: AZATHIOPRINE
     Dosage: REST OF THE DAYS OF THE WEEK
     Dates: start: 20240125
  14. MYFORTIC [Concomitant]
     Active Substance: MYCOPHENOLATE SODIUM
  15. PANTOPRAZOLE [Concomitant]
     Active Substance: PANTOPRAZOLE
  16. VITAMIN D [Concomitant]
     Active Substance: VITAMIN D NOS

REACTIONS (18)
  - Drug ineffective for unapproved indication [Unknown]
  - Product use in unapproved indication [Unknown]
  - Drug intolerance [Unknown]
  - Systemic lupus erythematosus [Unknown]
  - Myopericarditis [Unknown]
  - Pericarditis [Unknown]
  - Arthritis [Unknown]
  - Gastrointestinal disorder [Unknown]
  - Blood iron decreased [Unknown]
  - Pleurisy [Unknown]
  - Dyspnoea [Unknown]
  - Fatigue [Not Recovered/Not Resolved]
  - C-reactive protein abnormal [Recovering/Resolving]
  - Alopecia [Not Recovered/Not Resolved]
  - Arthralgia [Recovering/Resolving]
  - Chest pain [Recovering/Resolving]
  - Joint effusion [Unknown]
  - Inflammation [Unknown]

NARRATIVE: CASE EVENT DATE: 20240426
